FAERS Safety Report 17338357 (Version 1)
Quarter: 2020Q1

REPORT INFORMATION
  Report Type: Spontaneous
  Country: US (occurrence: US)
  Receive Date: 20200113
  Receipt Date: 20200113
  Transmission Date: 20200409
  Serious: Yes (Hospitalization)
  Sender: FDA-Public Use
  Company Number: None

PATIENT
  Age: 62 Year
  Sex: Female

DRUGS (1)
  1. SIMPONI [Suspect]
     Active Substance: GOLIMUMAB
     Indication: ARTHROPATHY
     Dosage: ?          OTHER FREQUENCY:Q28DAYS ;?
     Route: 058
     Dates: start: 20191031

REACTIONS (2)
  - Condition aggravated [None]
  - Pain [None]

NARRATIVE: CASE EVENT DATE: 20191228
